FAERS Safety Report 5139156-4 (Version None)
Quarter: 2006Q4

REPORT INFORMATION
  Report Type: 
  Country: None (occurrence: None)
  Receive Date: 20061030
  Receipt Date: 20060630
  Transmission Date: 20070319
  Serious: No
  Sender: FDA-Public Use
  Company Number: US-GLAXOSMITHKLINE-A0610925A

PATIENT
  Age: 10 Year
  Sex: Female
  Weight: 49.5 kg

DRUGS (6)
  1. ADVAIR HFA [Suspect]
     Indication: ASTHMA
     Route: 055
     Dates: start: 20050719, end: 20060620
  2. ZYRTEC [Concomitant]
     Indication: MULTIPLE ALLERGIES
     Route: 048
  3. ALBUTEROL [Concomitant]
     Indication: ASTHMA
     Route: 055
  4. MULTI-VITAMIN [Concomitant]
     Route: 048
  5. NEXIUM [Concomitant]
     Route: 048
  6. MELATONIN [Concomitant]
     Route: 048

REACTIONS (2)
  - ABDOMINAL PAIN UPPER [None]
  - NAUSEA [None]
